FAERS Safety Report 17729302 (Version 1)
Quarter: 2020Q2

REPORT INFORMATION
  Report Type: Spontaneous
  Country: US (occurrence: US)
  Receive Date: 20200429
  Receipt Date: 20200429
  Transmission Date: 20200714
  Serious: Yes (Hospitalization)
  Sender: FDA-Public Use
  Company Number: None

PATIENT
  Age: 46 Year
  Sex: Male
  Weight: 98 kg

DRUGS (1)
  1. BACLOFEN (BACLOFEN 10MG TAB) [Suspect]
     Active Substance: BACLOFEN
     Indication: PAIN
     Route: 048
     Dates: start: 20191217, end: 20200404

REACTIONS (6)
  - Agitation [None]
  - Road traffic accident [None]
  - Toxicity to various agents [None]
  - Confusional state [None]
  - Abnormal behaviour [None]
  - Sedation [None]

NARRATIVE: CASE EVENT DATE: 20200404
